FAERS Safety Report 9428895 (Version 1)
Quarter: 2013Q3

REPORT INFORMATION
  Report Type: Report from Study
  Country: US (occurrence: US)
  Receive Date: 20130730
  Receipt Date: 20130730
  Transmission Date: 20140515
  Serious: No
  Sender: FDA-Public Use
  Company Number: US-ABBOTT-13P-163-1033353-00

PATIENT
  Sex: Male
  Weight: 115.32 kg

DRUGS (5)
  1. NIASPAN (COATED) [Suspect]
     Indication: ARTERIAL DISORDER
     Dosage: AT BED TIME
     Route: 048
  2. FENESTERIDE [Concomitant]
     Indication: PRODUCT USED FOR UNKNOWN INDICATION
     Route: 048
  3. CELEBREX [Concomitant]
     Indication: ARTHRALGIA
     Route: 048
  4. UNKNOWN OTHER MEDICATION [Concomitant]
     Indication: HYPERSENSITIVITY
     Route: 048
  5. OMEPRAZOLE [Concomitant]
     Indication: PRODUCT USED FOR UNKNOWN INDICATION
     Route: 048

REACTIONS (5)
  - Formication [Not Recovered/Not Resolved]
  - Flushing [Recovered/Resolved]
  - Skin burning sensation [Recovered/Resolved]
  - Pain in extremity [Not Recovered/Not Resolved]
  - Paraesthesia [Not Recovered/Not Resolved]
